FAERS Safety Report 11244648 (Version 3)
Quarter: 2018Q2

REPORT INFORMATION
  Report Type: Spontaneous
  Country: US (occurrence: US)
  Receive Date: 20150707
  Receipt Date: 20180613
  Transmission Date: 20180711
  Serious: Yes (Hospitalization, Other)
  Sender: FDA-Public Use
  Company Number: US-DSJP-DSU-2015-120493

PATIENT

DRUGS (2)
  1. BENICAR [Suspect]
     Active Substance: OLMESARTAN MEDOXOMIL
     Dosage: 5 MG, UNK
  2. BENICAR [Suspect]
     Active Substance: OLMESARTAN MEDOXOMIL
     Indication: HYPERTENSION
     Dosage: 20 MG, QD
     Dates: start: 20120101, end: 2013

REACTIONS (18)
  - Renal failure [Unknown]
  - Cholelithiasis [Unknown]
  - Hiatus hernia [Unknown]
  - Anal fissure [Unknown]
  - Haemorrhoids [Unknown]
  - Drug administration error [Unknown]
  - Gallbladder disorder [Unknown]
  - Barrett^s oesophagus [Unknown]
  - Rectal haemorrhage [Recovered/Resolved]
  - Sprue-like enteropathy [Unknown]
  - Inflammatory bowel disease [Unknown]
  - Jaundice [Recovered/Resolved]
  - Dizziness [Unknown]
  - Colectomy [Unknown]
  - Gastrooesophageal reflux disease [Unknown]
  - Diverticulum [Unknown]
  - Colon adenoma [Recovered/Resolved]
  - Reactive gastropathy [Unknown]

NARRATIVE: CASE EVENT DATE: 20130101
